FAERS Safety Report 20493791 (Version 1)
Quarter: 2022Q1

REPORT INFORMATION
  Report Type: Spontaneous
  Country: US (occurrence: US)
  Receive Date: 20220221
  Receipt Date: 20220221
  Transmission Date: 20220423
  Serious: No
  Sender: FDA-Public Use
  Company Number: US-BIOGEN-2022BI01097073

PATIENT
  Sex: Female

DRUGS (1)
  1. ADUHELM [Suspect]
     Active Substance: ADUCANUMAB-AVWA
     Indication: Cognitive disorder
     Route: 042
     Dates: start: 202111, end: 202202

REACTIONS (3)
  - Dyspnoea [Unknown]
  - Pruritus [Unknown]
  - Diarrhoea [Unknown]
